FAERS Safety Report 19457156 (Version 1)
Quarter: 2021Q2

REPORT INFORMATION
  Report Type: Spontaneous
  Country: US (occurrence: US)
  Receive Date: 20210624
  Receipt Date: 20210624
  Transmission Date: 20210717
  Serious: No
  Sender: FDA-Public Use
  Company Number: US-DECIPHERA PHARMACEUTICALS LLC-2021US000149

PATIENT
  Age: 72 Year
  Sex: Female
  Weight: 70.3 kg

DRUGS (1)
  1. QINLOCK [Suspect]
     Active Substance: RIPRETINIB
     Indication: PRODUCT USED FOR UNKNOWN INDICATION
     Dosage: 150 MILLIGRAM, BID
     Route: 048
     Dates: start: 20200624, end: 20210216

REACTIONS (3)
  - Overdose [Unknown]
  - Computerised tomogram abnormal [Unknown]
  - Therapy change [Unknown]

NARRATIVE: CASE EVENT DATE: 20210216
